FAERS Safety Report 7247729-8 (Version None)
Quarter: 2011Q1

REPORT INFORMATION
  Report Type: 
  Country: None (occurrence: None)
  Receive Date: 20110127
  Receipt Date: 20110118
  Transmission Date: 20110831
  Serious: Yes (Other)
  Sender: FDA-Public Use
  Company Number: US-ASTRAZENECA-2011SE03092

PATIENT
  Sex: Male

DRUGS (2)
  1. NEXIUM [Suspect]
     Indication: BLEEDING VARICOSE VEIN
     Route: 048
  2. PRILOSEC [Suspect]
     Route: 048

REACTIONS (5)
  - HAEMORRHAGE [None]
  - TYPE 2 DIABETES MELLITUS [None]
  - DRUG DOSE OMISSION [None]
  - HEPATIC CIRRHOSIS [None]
  - HEPATIC NEOPLASM [None]
